FAERS Safety Report 18322392 (Version 1)
Quarter: 2020Q3

REPORT INFORMATION
  Report Type: Spontaneous
  Country: US (occurrence: US)
  Receive Date: 20200925
  Receipt Date: 20200925
  Transmission Date: 20201103
  Serious: No
  Sender: FDA-Public Use
  Company Number: None

PATIENT
  Age: 67 Year
  Sex: Male

DRUGS (8)
  1. AMLODIPINE [Concomitant]
     Active Substance: AMLODIPINE BESYLATE
  2. IBPROPHEN [Concomitant]
  3. LUCENTIS [Suspect]
     Active Substance: RANIBIZUMAB
  4. LEVENMIR [Concomitant]
  5. HUMALOG [Concomitant]
     Active Substance: INSULIN LISPRO
  6. METFORMIN [Concomitant]
     Active Substance: METFORMIN HYDROCHLORIDE
  7. BAER [Concomitant]
  8. LUCENTIS [Suspect]
     Active Substance: RANIBIZUMAB

REACTIONS (3)
  - Headache [None]
  - Eye pain [None]
  - Ear pain [None]

NARRATIVE: CASE EVENT DATE: 20191103
